FAERS Safety Report 6664038-6 (Version None)
Quarter: 2010Q2

REPORT INFORMATION
  Report Type: 
  Country: None (occurrence: None)
  Receive Date: 20100401
  Receipt Date: 20100326
  Transmission Date: 20101027
  Serious: Yes (Other)
  Sender: FDA-Public Use
  Company Number: A0847577A

PATIENT
  Age: 59 Year
  Sex: Female

DRUGS (8)
  1. TYKERB [Suspect]
     Indication: BREAST CANCER
     Dosage: 4TAB PER DAY
     Route: 048
     Dates: start: 20100222
  2. VICODIN [Concomitant]
  3. THEOPHYLLINE [Concomitant]
  4. CARVEDILOL [Concomitant]
  5. XELODA [Concomitant]
     Dates: end: 20100301
  6. IMODIUM [Concomitant]
  7. ALBUTEROL [Concomitant]
  8. IPRATROPIUM [Concomitant]

REACTIONS (6)
  - DIARRHOEA [None]
  - DYSGEUSIA [None]
  - FATIGUE [None]
  - NAUSEA [None]
  - PALMAR-PLANTAR ERYTHRODYSAESTHESIA SYNDROME [None]
  - VOMITING [None]
